FAERS Safety Report 4410924-7 (Version None)
Quarter: 2004Q3

REPORT INFORMATION
  Report Type: 
  Country: None (occurrence: None)
  Receive Date: 20040728
  Receipt Date: 20040728
  Transmission Date: 20050211
  Serious: Yes (Hospitalization)
  Sender: FDA-Public Use
  Company Number: None

PATIENT
  Age: 77 Year
  Sex: Male
  Weight: 79.8 kg

DRUGS (13)
  1. WARFARIN SODIUM [Suspect]
     Indication: DEEP VEIN THROMBOSIS
     Dosage: PO
     Route: 048
     Dates: start: 20031107, end: 20031210
  2. ENOXAPARIN SODIUM [Suspect]
     Dosage: SC
     Route: 058
  3. DOCUSATE NA [Concomitant]
  4. MILK OF MAGNESIA TAB [Concomitant]
  5. MIRTAZAPINE [Concomitant]
  6. ABSORBASE [Concomitant]
  7. RABEPRAZOLE SODIUM [Concomitant]
  8. OLANZAPINE [Concomitant]
  9. OLANZAPINE [Concomitant]
  10. MULTI-VITAMIN [Concomitant]
  11. HYDROXYZINE HCL [Concomitant]
  12. AL HYDROXIDE/MG HYDROX/SIMETHICONE [Concomitant]
  13. ACETAMINOPHEN [Concomitant]

REACTIONS (2)
  - ANAEMIA [None]
  - HAEMATOMA [None]
